FAERS Safety Report 16595747 (Version 1)
Quarter: 2019Q3

REPORT INFORMATION
  Report Type: Spontaneous
  Country: US (occurrence: US)
  Receive Date: 20190605
  Receipt Date: 20190605
  Transmission Date: 20191004
  Serious: No
  Sender: FDA-Public Use
  Company Number: None

PATIENT

DRUGS (2)
  1. PROPOFOL. [Suspect]
     Active Substance: PROPOFOL
  2. ROTAGLIDE [Suspect]
     Active Substance: EGG YOLK\GLYCERIN\OLIVE OIL\PHOSPHOLIPID

REACTIONS (1)
  - Product appearance confusion [None]
